APPROVED DRUG PRODUCT: CIMETIDINE
Active Ingredient: CIMETIDINE
Strength: 400MG
Dosage Form/Route: TABLET;ORAL
Application: A218220 | Product #003 | TE Code: AB
Applicant: BIONPHARMA INC
Approved: Nov 7, 2024 | RLD: No | RS: No | Type: RX